FAERS Safety Report 23500397 (Version 1)
Quarter: 2024Q1

REPORT INFORMATION
  Report Type: Spontaneous
  Country: ES (occurrence: ES)
  Receive Date: 20240208
  Receipt Date: 20240208
  Transmission Date: 20240410
  Serious: Yes (Death, Disabling, Other)
  Sender: FDA-Public Use
  Company Number: ES-SA-SAC20211207000317

PATIENT
  Age: 64 Year
  Sex: Female

DRUGS (3)
  1. CYCLOPHOSPHAMIDE [Suspect]
     Active Substance: CYCLOPHOSPHAMIDE
     Indication: Plasma cell myeloma
     Dosage: 471 MG
     Route: 065
     Dates: start: 20210414, end: 20210416
  2. FLUDARABINE PHOSPHATE [Suspect]
     Active Substance: FLUDARABINE PHOSPHATE
     Indication: Plasma cell myeloma
     Dosage: 47.1 MG, QD
     Route: 042
     Dates: start: 20210414, end: 20210416
  3. IDECABTAGENE VICLEUCEL [Suspect]
     Active Substance: IDECABTAGENE VICLEUCEL
     Indication: Plasma cell myeloma
     Dosage: SINGLE, IV
     Route: 042
     Dates: start: 20210419, end: 20210419

REACTIONS (3)
  - Death [Fatal]
  - Cytomegalovirus chorioretinitis [Unknown]
  - Retinopathy [Unknown]

NARRATIVE: CASE EVENT DATE: 20210901
